FAERS Safety Report 20375543 (Version 1)
Quarter: 2022Q1

REPORT INFORMATION
  Report Type: Spontaneous
  Country: US (occurrence: US)
  Receive Date: 20220125
  Receipt Date: 20220125
  Transmission Date: 20220423
  Serious: Yes (Other)
  Sender: FDA-Public Use
  Company Number: US-Fresenius Kabi-FK202200872

PATIENT
  Age: 28 Year
  Sex: Male

DRUGS (2)
  1. FENTANYL [Suspect]
     Active Substance: FENTANYL
     Indication: Product used for unknown indication
     Route: 065
  2. METHAMPHETAMINE HYDROCHLORIDE [Suspect]
     Active Substance: METHAMPHETAMINE HYDROCHLORIDE
     Indication: Product used for unknown indication
     Route: 065

REACTIONS (6)
  - Deafness neurosensory [Recovering/Resolving]
  - Myocardial injury [Unknown]
  - Acute kidney injury [Unknown]
  - Rhabdomyolysis [Unknown]
  - Hepatic failure [Unknown]
  - Overdose [Unknown]
